FAERS Safety Report 18212361 (Version 1)
Quarter: 2020Q3

REPORT INFORMATION
  Report Type: Spontaneous
  Country: US (occurrence: US)
  Receive Date: 20200828
  Receipt Date: 20200828
  Transmission Date: 20201103
  Serious: No
  Sender: FDA-Public Use
  Company Number: None

PATIENT
  Sex: Female

DRUGS (2)
  1. BUPROPION 150MG [Suspect]
     Active Substance: BUPROPION HYDROCHLORIDE
  2. FLUVOXAMINE [Suspect]
     Active Substance: FLUVOXAMINE

REACTIONS (1)
  - Drug ineffective [None]
